FAERS Safety Report 22131469 (Version 3)
Quarter: 2024Q2

REPORT INFORMATION
  Report Type: Report from Study
  Country: US (occurrence: US)
  Receive Date: 20230323
  Receipt Date: 20240520
  Transmission Date: 20240716
  Serious: Yes (Hospitalization)
  Sender: FDA-Public Use
  Company Number: US-PFIZER INC-202300124330

PATIENT
  Age: 53 Year
  Sex: Female

DRUGS (9)
  1. BRAFTOVI [Suspect]
     Active Substance: ENCORAFENIB
     Indication: Malignant melanoma
     Dosage: 300 MG, DAILY
     Route: 048
     Dates: start: 20230318
  2. BRAFTOVI [Suspect]
     Active Substance: ENCORAFENIB
     Dosage: 300 MG (4 X 75 MG CAPSULES), ONCE DAILY
     Route: 048
     Dates: start: 202302
  3. MEKTOVI [Suspect]
     Active Substance: BINIMETINIB
     Indication: Malignant melanoma
     Dosage: 45 MG (3 X 15 MG TABLETS), TWICE DAILY
     Route: 048
     Dates: start: 20230318
  4. MEKTOVI [Suspect]
     Active Substance: BINIMETINIB
     Dosage: 2 PILLS TWICE DAY
     Route: 048
     Dates: start: 202302
  5. MORPHINE [Concomitant]
     Active Substance: MORPHINE
     Dosage: UNK
  6. KEPPRA [Concomitant]
     Active Substance: LEVETIRACETAM
     Dosage: UNK
  7. TYLENOL [Concomitant]
     Active Substance: ACETAMINOPHEN
     Dosage: UNK
  8. IRON [Concomitant]
     Active Substance: IRON
     Dosage: UNK
  9. PREVAGEN [APOAEQUORIN] [Concomitant]
     Dosage: UNK

REACTIONS (9)
  - Weight decreased [Not Recovered/Not Resolved]
  - Halo vision [Not Recovered/Not Resolved]
  - Fatigue [Not Recovered/Not Resolved]
  - Dizziness [Recovered/Resolved]
  - Dyschromatopsia [Not Recovered/Not Resolved]
  - Optic nerve disorder [Not Recovered/Not Resolved]
  - Dermatitis acneiform [Recovered/Resolved]
  - Alopecia [Not Recovered/Not Resolved]
  - Rash [Unknown]

NARRATIVE: CASE EVENT DATE: 20230201
